FAERS Safety Report 4907029-5 (Version None)
Quarter: 2006Q1

REPORT INFORMATION
  Report Type: 
  Country: None (occurrence: None)
  Receive Date: 20060206
  Receipt Date: 20060127
  Transmission Date: 20060701
  Serious: Yes (Life-Threatening, Hospitalization, Disabling, Other)
  Sender: FDA-Public Use
  Company Number: 200420331BWH

PATIENT
  Age: 84 Year
  Sex: Male

DRUGS (3)
  1. AVELOX [Suspect]
     Indication: LOBAR PNEUMONIA
     Dosage: 400 MG, QD, INTRAVENOUS
     Route: 042
     Dates: start: 20040521, end: 20040531
  2. CARDIZEM [Concomitant]
     Indication: MENTAL STATUS CHANGES
  3. METOPROLOL [Concomitant]

REACTIONS (8)
  - ANOXIC ENCEPHALOPATHY [None]
  - ATRIAL FIBRILLATION [None]
  - CARDIAC ARREST [None]
  - CARDIAC FAILURE CONGESTIVE [None]
  - COMA [None]
  - MYOCARDIAL INFARCTION [None]
  - TORSADE DE POINTES [None]
  - VENTRICULAR TACHYCARDIA [None]
